FAERS Safety Report 18085208 (Version 1)
Quarter: 2020Q3

REPORT INFORMATION
  Report Type: Spontaneous
  Country: US (occurrence: US)
  Receive Date: 20200728
  Receipt Date: 20200728
  Transmission Date: 20201103
  Serious: Yes (Death)
  Sender: FDA-Public Use
  Company Number: None

PATIENT
  Age: 73 Year
  Sex: Female
  Weight: 69.4 kg

DRUGS (15)
  1. REMDESIVIR. [Suspect]
     Active Substance: REMDESIVIR
     Indication: COVID-19
     Dates: start: 20200621, end: 20200630
  2. PROTONIX 20 MG IV DAILY [Concomitant]
     Dates: start: 20200722
  3. LOVENOX 70 MG IV BID [Concomitant]
     Dates: start: 20200625, end: 20200722
  4. ATIVAN 1 MG IV X1 [Concomitant]
     Dates: start: 20200722
  5. THIAMINE 100 MG IV DAILY [Concomitant]
     Dates: start: 20200720, end: 20200722
  6. INSULIN ASPART 7 UNITS SUB Q TID WIHT MEALS [Concomitant]
     Dates: start: 20200721, end: 20200722
  7. MORPHINE 1 MG IV X1 [Concomitant]
     Dates: start: 20200722
  8. LANTUS SUBQ 17 UNITS NIGHTLY [Concomitant]
     Dates: start: 20200721, end: 20200722
  9. LOSARTAN 25 MG PO DAILY [Concomitant]
     Dates: start: 20200626, end: 20200722
  10. SENNA 1 TABLET NIGHTLY [Concomitant]
     Dates: start: 20200718, end: 20200722
  11. MORPHINE PCA [Concomitant]
     Active Substance: MORPHINE
     Dates: start: 20200722
  12. INSULIN SLIDING SCALE [Concomitant]
     Dates: start: 20200704, end: 20200722
  13. PRECEDEX TITRATED [Concomitant]
     Dates: start: 20200721, end: 20200722
  14. DOCUSATE 100 MG PO BID [Concomitant]
     Dates: start: 20200718, end: 20200722
  15. MORPHINE 4 MG IV X1 [Concomitant]
     Dates: start: 20200722

REACTIONS (2)
  - COVID-19 pneumonia [None]
  - Respiratory distress [None]

NARRATIVE: CASE EVENT DATE: 20200722
